FAERS Safety Report 4313819-2 (Version None)
Quarter: 2004Q1

REPORT INFORMATION
  Report Type: 
  Country: None (occurrence: None)
  Receive Date: 20040304
  Receipt Date: 20040109
  Transmission Date: 20041129
  Serious: Yes (Other)
  Sender: FDA-Public Use
  Company Number: 2004001621

PATIENT
  Age: 13 Year
  Sex: Male

DRUGS (8)
  1. GEODON [Suspect]
     Indication: ATTENTION DEFICIT/HYPERACTIVITY DISORDER
     Dosage: 20 MG (QAM), ORAL
     Route: 048
     Dates: start: 20031120, end: 20031122
  2. GEODON [Suspect]
     Indication: BIPOLAR I DISORDER
     Dosage: 20 MG (QAM), ORAL
     Route: 048
     Dates: start: 20031120, end: 20031122
  3. GEODON [Suspect]
     Indication: OPPOSITIONAL DEFIANT DISORDER
     Dosage: 20 MG (QAM), ORAL
     Route: 048
     Dates: start: 20031120, end: 20031122
  4. VALPROATE SODIUM [Concomitant]
  5. CITALOPRAM HYDROBROMIDE (CITALOPRAM HYDROBROMIDE) [Concomitant]
  6. LEVOTHYROXINE SODIUM [Concomitant]
  7. QUETIAPINE FUMARATE (QUETIAPINE FUMARATE) [Concomitant]
  8. OBETROL [Concomitant]

REACTIONS (1)
  - TORTICOLLIS [None]
